FAERS Safety Report 11242210 (Version 1)
Quarter: 2015Q3

REPORT INFORMATION
  Report Type: Report from Study
  Country: US (occurrence: US)
  Receive Date: 20150707
  Receipt Date: 20150707
  Transmission Date: 20151125
  Serious: Yes (Other)
  Sender: FDA-Public Use
  Company Number: PHEH2014US012437

PATIENT
  Age: 50 Year
  Sex: Female
  Weight: 65.32 kg

DRUGS (4)
  1. BACLOFEN. [Concomitant]
     Active Substance: BACLOFEN
     Indication: MUSCLE SPASTICITY
     Dosage: 1 DF, QD
     Route: 048
     Dates: start: 20141231
  2. GILENYA [Suspect]
     Active Substance: FINGOLIMOD HYDROCHLORIDE
     Indication: MULTIPLE SCLEROSIS
     Dosage: 0.5 MG, QD
     Route: 048
     Dates: start: 20111123, end: 20140620
  3. DIAZEPAM. [Concomitant]
     Active Substance: DIAZEPAM
     Indication: HYPOTONIA
     Route: 048
  4. DIAZEPAM. [Concomitant]
     Active Substance: DIAZEPAM
     Indication: ANXIETY

REACTIONS (8)
  - Blister [Not Recovered/Not Resolved]
  - White blood cell count decreased [Not Recovered/Not Resolved]
  - Herpes zoster [Recovered/Resolved]
  - Lymphocyte count decreased [Unknown]
  - Insomnia [Unknown]
  - Pain [Unknown]
  - Rash erythematous [Not Recovered/Not Resolved]
  - Anti-JC virus antibody index [Unknown]

NARRATIVE: CASE EVENT DATE: 20120606
